FAERS Safety Report 16460864 (Version 1)
Quarter: 2019Q2

REPORT INFORMATION
  Report Type: Spontaneous
  Country: US (occurrence: US)
  Receive Date: 20190620
  Receipt Date: 20190620
  Transmission Date: 20190711
  Serious: Yes (Other)
  Sender: FDA-Public Use
  Company Number: US-GE HEALTHCARE LIFE SCIENCES-2019CSU003160

PATIENT
  Age: 52 Year
  Sex: Male

DRUGS (2)
  1. GADOLINIUM (UNSPECIFIED) [Suspect]
     Active Substance: GADOLINIUM
     Indication: MULTIPLE SCLEROSIS
  2. GADOLINIUM (UNSPECIFIED) [Suspect]
     Active Substance: GADOLINIUM
     Indication: NUCLEAR MAGNETIC RESONANCE IMAGING
     Dosage: SINGLE CONTRAST INJECTION EACH TIME, RECEIVED REPEATED DOSES UNTIL 2018
     Route: 042
     Dates: start: 2011, end: 2018

REACTIONS (1)
  - Nuclear magnetic resonance imaging brain abnormal [Unknown]
